FAERS Safety Report 6345554-3 (Version None)
Quarter: 2009Q3

REPORT INFORMATION
  Report Type: 
  Country: None (occurrence: None)
  Receive Date: 20090909
  Receipt Date: 20090902
  Transmission Date: 20100115
  Serious: Yes (Hospitalization)
  Sender: FDA-Public Use
  Company Number: US-BRISTOL-MYERS SQUIBB COMPANY-14765796

PATIENT
  Age: 64 Year
  Sex: Female
  Weight: 83 kg

DRUGS (4)
  1. ERBITUX [Suspect]
     Indication: NON-SMALL CELL LUNG CANCER
     Dosage: CONCURRENT CHEMOTHERAPY WITH 09JUN09-28JUL09 AND CONSOLIDATION CHEMOTHERAPY  04AUG09 TO 25AUG09.
     Dates: start: 20090609, end: 20090825
  2. TAXOL [Suspect]
     Indication: NON-SMALL CELL LUNG CANCER
     Dosage: CONCURRENT CHEMOTHERAPY: 16JUN09-28JUL09 AND CONSOLIDATION CHEMOTHERAPY: 04-AUG-2009 TO 25-AUG-2009
     Dates: start: 20090616, end: 20090825
  3. CARBOPLATIN [Suspect]
     Indication: NON-SMALL CELL LUNG CANCER
     Dosage: CONCURRENT CHEMOTHERAPY: 16JUN09-28JUL09 AND CONSOLIDATION CHEMOTHERAPY: 04-AUG-2009 TO 25-AUG-2009
     Dates: start: 20090616, end: 20090825
  4. RADIATION THERAPY [Suspect]
     Indication: NON-SMALL CELL LUNG CANCER
     Dosage: DF-GY,NO OF FRACTIONS-37,NO OF ELASPSED DAY-55
     Dates: start: 20090616, end: 20090810

REACTIONS (4)
  - CHEST PAIN [None]
  - DYSPHAGIA [None]
  - DYSPNOEA [None]
  - SINUS TACHYCARDIA [None]
